FAERS Safety Report 8825799 (Version 3)
Quarter: 2012Q4

REPORT INFORMATION
  Report Type: 
  Country: ES (occurrence: ES)
  Receive Date: 20121004
  Receipt Date: 20121128
  Transmission Date: 20130627
  Serious: Yes (Disabling, Other)
  Sender: FDA-Public Use
  Company Number: ES-VERTEX PHARMACEUTICAL INC.-2012-022266

PATIENT
  Sex: Male

DRUGS (7)
  1. INCIVO [Suspect]
     Indication: HEPATITIS C
     Dosage: 6 DF, UNK
     Route: 065
     Dates: start: 201207
  2. PEGASYS [Concomitant]
     Indication: HEPATITIS C
     Dosage: UNK
     Route: 065
     Dates: start: 201207
  3. COPEGUS [Concomitant]
     Indication: HEPATITIS C
     Dosage: UNK
     Route: 065
  4. TENOFOVIR [Concomitant]
     Indication: HIV INFECTION
     Route: 065
  5. TRUVADA [Concomitant]
     Indication: HIV INFECTION
     Route: 065
  6. ATAZANAVIR [Concomitant]
     Indication: HIV INFECTION
     Route: 065
  7. NORVIR [Concomitant]
     Indication: HIV INFECTION
     Route: 065

REACTIONS (2)
  - Otitis media [Unknown]
  - Pancytopenia [Unknown]
